FAERS Safety Report 15352362 (Version 4)
Quarter: 2018Q4

REPORT INFORMATION
  Report Type: Report from Study
  Country: TR (occurrence: TR)
  Receive Date: 20180905
  Receipt Date: 20181011
  Transmission Date: 20190204
  Serious: Yes (Death, Other)
  Sender: FDA-Public Use
  Company Number: TR-PFIZER INC-2018357344

PATIENT
  Age: 28 Year
  Sex: Male
  Weight: 76 kg

DRUGS (4)
  1. MAXIPEN [MEROPENEM TRIHYDRATE] [Concomitant]
     Dosage: 3000 MG, DAILY
     Route: 042
     Dates: start: 20180812
  2. INOTUZUMAB OZOGAMICIN [Suspect]
     Active Substance: INOTUZUMAB OZOGAMICIN
     Indication: ACUTE LEUKAEMIA
     Dosage: UNK DAY 1,8,15
  3. BACTRIM [Concomitant]
     Active Substance: SULFAMETHOXAZOLE\TRIMETHOPRIM
     Dosage: 4X4 VIAL, 1 VIAL 400/80 MG
     Route: 042
     Dates: start: 20180823
  4. AMBISOME [Concomitant]
     Active Substance: AMPHOTERICIN B
     Dosage: 200 MG, 1X/DAY (1X4 VIAL, 1 VIAL 50 MG))
     Route: 042
     Dates: start: 20180812

REACTIONS (6)
  - Pyrexia [Unknown]
  - Respiratory failure [Unknown]
  - Pneumonia [Unknown]
  - Confusional state [Unknown]
  - Death [Fatal]
  - Hypotension [Unknown]

NARRATIVE: CASE EVENT DATE: 20180831
